FAERS Safety Report 20937768 (Version 1)
Quarter: 2022Q2

REPORT INFORMATION
  Report Type: Spontaneous
  Country: CN (occurrence: CN)
  Receive Date: 20220609
  Receipt Date: 20220609
  Transmission Date: 20220720
  Serious: Yes (Other)
  Sender: FDA-Public Use
  Company Number: CN-ELI_LILLY_AND_COMPANY-CN202205013305

PATIENT
  Sex: Female
  Weight: 60 kg

DRUGS (2)
  1. HUMULIN R [Suspect]
     Active Substance: INSULIN HUMAN
     Indication: Type 2 diabetes mellitus
     Dosage: 19 U, EACH MORNING (18,19 UNITS)
     Route: 058
     Dates: start: 2002
  2. HUMULIN R [Suspect]
     Active Substance: INSULIN HUMAN
     Dosage: 13 U, DAILY (12, 13 UNITS AT NIGHT)
     Route: 058
     Dates: start: 2002

REACTIONS (5)
  - Cerebral infarction [Unknown]
  - Skin mass [Unknown]
  - Cold sweat [Unknown]
  - Nausea [Unknown]
  - Blood glucose increased [Unknown]

NARRATIVE: CASE EVENT DATE: 20190101
